FAERS Safety Report 19109283 (Version 1)
Quarter: 2021Q2

REPORT INFORMATION
  Report Type: Report from Study
  Country: ES (occurrence: ES)
  Receive Date: 20210409
  Receipt Date: 20210409
  Transmission Date: 20210717
  Serious: Yes (Other)
  Sender: FDA-Public Use
  Company Number: ES-AUROBINDO-AUR-APL-2019-080231

PATIENT
  Age: 46 Year
  Sex: Male

DRUGS (6)
  1. ACETYLSALICYLIC ACID [Suspect]
     Active Substance: ASPIRIN
     Dosage: 250 MILLIGRAM
     Route: 048
  2. IBUPROFEN. [Suspect]
     Active Substance: IBUPROFEN
     Indication: PRODUCT USED FOR UNKNOWN INDICATION
     Dosage: UNK
     Route: 065
  3. ACETYLSALICYLIC ACID [Suspect]
     Active Substance: ASPIRIN
     Indication: PRODUCT USED FOR UNKNOWN INDICATION
     Dosage: 50 MILLIGRAM
     Route: 065
  4. TRIFLUSAL [Concomitant]
     Active Substance: TRIFLUSAL
     Indication: DRUG PROVOCATION TEST
     Dosage: 300 MILLIGRAM DAY 1 75, 150
     Route: 065
  5. ACETYLSALICYLIC ACID [Suspect]
     Active Substance: ASPIRIN
     Dosage: 125 MILLIGRAM
     Route: 065
  6. TRIFLUSAL [Concomitant]
     Active Substance: TRIFLUSAL
     Dosage: 600 MILLIGRAM DAY 2
     Route: 065

REACTIONS (3)
  - Type I hypersensitivity [Unknown]
  - Angioedema [Unknown]
  - Urticaria [Unknown]
